FAERS Safety Report 16535393 (Version 1)
Quarter: 2019Q3

REPORT INFORMATION
  Report Type: Spontaneous
  Country: AT (occurrence: AT)
  Receive Date: 20190705
  Receipt Date: 20190705
  Transmission Date: 20191004
  Serious: Yes (Hospitalization)
  Sender: FDA-Public Use
  Company Number: AT-TEVA-2019-AT-1073331

PATIENT
  Age: 37 Year
  Sex: Female

DRUGS (9)
  1. MIRTEL [Suspect]
     Active Substance: MIRTAZAPINE
     Dates: start: 20190130, end: 20190217
  2. SUBSTITOL RETARD [Concomitant]
  3. IXEL [Concomitant]
     Active Substance: MILNACIPRAN HYDROCHLORIDE
     Dates: start: 20190128, end: 20190128
  4. LAMOTRIGINE. [Suspect]
     Active Substance: LAMOTRIGINE
     Dates: start: 20190215, end: 20190217
  5. MIRTEL [Suspect]
     Active Substance: MIRTAZAPINE
     Dates: start: 20190129, end: 20190129
  6. PRAXITEN [Concomitant]
     Active Substance: OXAZEPAM
     Dates: start: 20190130
  7. IXEL [Concomitant]
     Active Substance: MILNACIPRAN HYDROCHLORIDE
     Dates: start: 20190129, end: 20190209
  8. VENLAFAXINE [Suspect]
     Active Substance: VENLAFAXINE HYDROCHLORIDE
     Dates: start: 20190209, end: 20190221
  9. MIRTEL [Suspect]
     Active Substance: MIRTAZAPINE
     Dates: start: 20190218, end: 20190220

REACTIONS (1)
  - Drug-induced liver injury [Recovering/Resolving]

NARRATIVE: CASE EVENT DATE: 20190215
